FAERS Safety Report 4451837-4 (Version None)
Quarter: 2004Q3

REPORT INFORMATION
  Report Type: 
  Country: None (occurrence: None)
  Receive Date: 20040915
  Receipt Date: 20040915
  Transmission Date: 20050211
  Serious: Yes (Hospitalization)
  Sender: FDA-Public Use
  Company Number: None

PATIENT
  Sex: Male
  Weight: 60 kg

DRUGS (7)
  1. AMIODARONE HCL [Suspect]
     Indication: ATRIAL FLUTTER
     Dosage: 400 MG PO QD
     Route: 048
     Dates: start: 20040128, end: 20040227
  2. METOPROLOL TARTRATE [Suspect]
     Indication: ATRIAL FLUTTER
     Dosage: 50 MG PO BID
     Route: 048
     Dates: start: 20040128, end: 20040227
  3. MORPHINE [Concomitant]
  4. DOCUSATE [Concomitant]
  5. HYDROCODONE [Concomitant]
  6. NICOTINE [Concomitant]
  7. FE SO4 [Concomitant]

REACTIONS (3)
  - ASTHENIA [None]
  - DYSPNOEA EXERTIONAL [None]
  - FATIGUE [None]
